FAERS Safety Report 22188813 (Version 1)
Quarter: 2023Q2

REPORT INFORMATION
  Report Type: Spontaneous
  Country: PR (occurrence: PR)
  Receive Date: 20230409
  Receipt Date: 20230409
  Transmission Date: 20230721
  Serious: No
  Sender: FDA-Public Use
  Company Number: PR-JNJFOC-20230409331

PATIENT
  Sex: Male

DRUGS (1)
  1. ERLEADA [Suspect]
     Active Substance: APALUTAMIDE
     Indication: Prostate cancer
     Route: 048

REACTIONS (2)
  - Decreased appetite [Unknown]
  - Taste disorder [Unknown]
